FAERS Safety Report 18616710 (Version 1)
Quarter: 2020Q4

REPORT INFORMATION
  Report Type: Spontaneous
  Country: DE (occurrence: DE)
  Receive Date: 20201215
  Receipt Date: 20201215
  Transmission Date: 20210114
  Serious: Yes (Other)
  Sender: FDA-Public Use
  Company Number: DE-SUN PHARMACEUTICAL INDUSTRIES LTD-2020RR-271315

PATIENT
  Age: 79 Year
  Sex: Female

DRUGS (1)
  1. PREGABALIN BASICS 75 MG HARTKAPSELN [Suspect]
     Active Substance: PREGABALIN
     Indication: PRODUCT USED FOR UNKNOWN INDICATION
     Dosage: MORE THAN A YEAR
     Route: 065

REACTIONS (1)
  - Myalgia [Unknown]
